FAERS Safety Report 17475619 (Version 11)
Quarter: 2024Q1

REPORT INFORMATION
  Report Type: Spontaneous
  Country: US (occurrence: US)
  Receive Date: 20200228
  Receipt Date: 20240214
  Transmission Date: 20240410
  Serious: Yes (Other)
  Sender: FDA-Public Use
  Company Number: US-PFIZER INC-2020089882

PATIENT
  Age: 67 Year
  Sex: Female
  Weight: 77.11 kg

DRUGS (2)
  1. IBRANCE [Suspect]
     Active Substance: PALBOCICLIB
     Indication: Breast cancer metastatic
     Dosage: 125 MG, CYCLIC (BY MOUTH ONCE A DAY 21 DAYS ON AND 7 DAYS OFF)
     Route: 048
  2. IBRANCE [Suspect]
     Active Substance: PALBOCICLIB
     Dosage: 100 MG, CYCLIC (ONCE A DAY FOR 21 DAYS ON AND 7 DAYS OFF)
     Route: 048

REACTIONS (9)
  - Cataract [Unknown]
  - Product dose omission issue [Unknown]
  - Body height decreased [Unknown]
  - Nasopharyngitis [Unknown]
  - Weight fluctuation [Unknown]
  - Feeling cold [Unknown]
  - Varicose vein [Unknown]
  - Stress [Unknown]
  - Alopecia [Unknown]

NARRATIVE: CASE EVENT DATE: 20200201
